FAERS Safety Report 7743954-8 (Version None)
Quarter: 2011Q3

REPORT INFORMATION
  Report Type: 
  Country: None (occurrence: None)
  Receive Date: 20110912
  Receipt Date: 20110907
  Transmission Date: 20111222
  Serious: Yes (Hospitalization)
  Sender: FDA-Public Use
  Company Number: GB-GLAXOSMITHKLINE-B0745534A

PATIENT
  Sex: Female

DRUGS (2)
  1. SERETIDE [Concomitant]
     Route: 055
  2. VENTOLIN HFA [Suspect]
     Indication: ASTHMA
     Route: 055

REACTIONS (1)
  - THROAT TIGHTNESS [None]
